FAERS Safety Report 6401316-X (Version None)
Quarter: 2009Q4

REPORT INFORMATION
  Report Type: 
  Country: None (occurrence: None)
  Receive Date: 20091015
  Receipt Date: 20071121
  Transmission Date: 20100525
  Serious: Yes (Death, Hospitalization, Other)
  Sender: FDA-Public Use
  Company Number: US-ASTRAZENECA-2006UW26070

PATIENT
  Age: 24101 Day
  Sex: Male
  Weight: 119.7 kg

DRUGS (46)
  1. SEROQUEL [Suspect]
     Indication: DEMENTIA ALZHEIMER'S TYPE
     Dosage: 25 MG - 300 MG
     Route: 048
     Dates: start: 20020514
  2. SEROQUEL [Suspect]
     Indication: PARANOIA
     Dosage: 25 MG - 300 MG
     Route: 048
     Dates: start: 20020514
  3. SEROQUEL [Suspect]
     Indication: ABNORMAL BEHAVIOUR
     Dosage: 25 MG - 300 MG
     Route: 048
     Dates: start: 20020514
  4. SEROQUEL [Suspect]
     Dosage: 15 MG - 300 MG
     Route: 048
     Dates: start: 20020514
  5. SEROQUEL [Suspect]
     Dosage: 15 MG - 300 MG
     Route: 048
     Dates: start: 20020514
  6. SEROQUEL [Suspect]
     Dosage: 15 MG - 300 MG
     Route: 048
     Dates: start: 20020514
  7. SEROQUEL [Suspect]
     Dosage: 200 MG - 300 MG
     Route: 048
     Dates: end: 20060616
  8. SEROQUEL [Suspect]
     Dosage: 200 MG - 300 MG
     Route: 048
     Dates: end: 20060616
  9. SEROQUEL [Suspect]
     Dosage: 200 MG - 300 MG
     Route: 048
     Dates: end: 20060616
  10. SEROQUEL [Suspect]
     Dosage: 25 MG - 200 MG
     Route: 048
  11. SEROQUEL [Suspect]
     Dosage: 25 MG - 200 MG
     Route: 048
  12. SEROQUEL [Suspect]
     Dosage: 25 MG - 200 MG
     Route: 048
  13. SEROQUEL [Suspect]
     Route: 048
  14. SEROQUEL [Suspect]
     Route: 048
  15. SEROQUEL [Suspect]
     Route: 048
  16. ARICEPT [Suspect]
     Dosage: 5 MG - 10 MG
     Route: 048
     Dates: start: 19990428, end: 20040914
  17. GEODON [Concomitant]
     Dosage: 10 MG - 60 MG
     Dates: start: 20050131, end: 20050805
  18. GEODON [Concomitant]
     Dosage: 40 MG -260 MG
     Route: 048
     Dates: start: 20050202
  19. RISPERDAL [Concomitant]
  20. DEPAKOTE [Concomitant]
     Dosage: 750 MG - 1500 MG, 250 MG PER 5 ML AND 40 ML AT BEDTIME
     Dates: start: 20050213
  21. NAMENDA [Concomitant]
     Route: 048
     Dates: start: 20050202
  22. HYTRIN [Concomitant]
     Route: 048
     Dates: start: 20050202
  23. AMARYL [Concomitant]
     Route: 048
     Dates: start: 20020215
  24. FUROSEMIDE [Concomitant]
  25. COZAAR [Concomitant]
     Route: 048
     Dates: start: 20050202
  26. PREMARIN [Concomitant]
     Dosage: 0.625 MG - 1.25 MG
     Dates: start: 20050213
  27. ATIVAN [Concomitant]
     Indication: AGITATION
     Dates: start: 20050808
  28. NORVASC [Concomitant]
     Route: 048
     Dates: start: 20020101
  29. TYLENOL (CAPLET) [Concomitant]
  30. WELLBUTRIN [Concomitant]
     Dates: start: 20050808
  31. VALPROIC ACID [Concomitant]
  32. HYZAAR/HCTZ [Concomitant]
     Dosage: 100/25 MG DAILY
     Route: 048
     Dates: start: 20011128
  33. VALIUM [Concomitant]
  34. FERROUS SULFATE TAB [Concomitant]
     Indication: ANAEMIA
     Dosage: 325 MG
     Dates: start: 20050808
  35. VYTORIN [Concomitant]
  36. DILANTIN [Concomitant]
     Dates: start: 20040914
  37. HYDROXYZINE [Concomitant]
  38. GLYBURIDE [Concomitant]
  39. HALDOL [Concomitant]
  40. NOVOLOG [Concomitant]
  41. LEVOTHYROXINE SODIUM [Concomitant]
  42. FLAGYL [Concomitant]
  43. FLU VACCINE [Concomitant]
  44. ZYLOPRIM [Concomitant]
     Dosage: 150 MG-450 MG
     Dates: start: 19920909
  45. LIPITOR [Concomitant]
     Route: 048
     Dates: start: 19980101
  46. ZOCOR [Concomitant]
     Dates: start: 20050202

REACTIONS (27)
  - ANXIETY [None]
  - BALANITIS [None]
  - CELLULITIS [None]
  - CONVULSION [None]
  - DEHYDRATION [None]
  - DEMENTIA ALZHEIMER'S TYPE [None]
  - DEPRESSION [None]
  - DIABETES MELLITUS [None]
  - GOUT [None]
  - GRAVITATIONAL OEDEMA [None]
  - HYPERLIPIDAEMIA [None]
  - HYPERNATRAEMIA [None]
  - HYPERTENSION [None]
  - HYPERURICAEMIA [None]
  - HYPONATRAEMIA [None]
  - OEDEMA PERIPHERAL [None]
  - PEPTIC ULCER PERFORATION, OBSTRUCTIVE [None]
  - PNEUMONIA [None]
  - PNEUMONIA ASPIRATION [None]
  - RENAL FAILURE [None]
  - RENAL FAILURE ACUTE [None]
  - SENILE DEMENTIA [None]
  - SKIN INJURY [None]
  - TRANSIENT ISCHAEMIC ATTACK [None]
  - TYPE 1 DIABETES MELLITUS [None]
  - URINARY INCONTINENCE [None]
  - VASCULAR DEMENTIA [None]
